FAERS Safety Report 9241638 (Version 1)
Quarter: 2013Q2

REPORT INFORMATION
  Report Type: Spontaneous
  Country: US (occurrence: US)
  Receive Date: 20130419
  Receipt Date: 20130419
  Transmission Date: 20140414
  Serious: Yes (Hospitalization)
  Sender: FDA-Public Use
  Company Number: US-PFIZER INC-2013120677

PATIENT
  Sex: Female
  Weight: 83.9 kg

DRUGS (2)
  1. NICOTROL INHALER [Suspect]
     Indication: CHRONIC OBSTRUCTIVE PULMONARY DISEASE
     Dosage: UNK
     Dates: start: 201304, end: 201304
  2. NICOTROL INHALER [Suspect]
     Indication: CORONARY ARTERY DISEASE

REACTIONS (4)
  - Apparent death [Unknown]
  - Dyspnoea [Unknown]
  - Nervousness [Not Recovered/Not Resolved]
  - Off label use [Unknown]
